FAERS Safety Report 8168512-5 (Version None)
Quarter: 2012Q1

REPORT INFORMATION
  Report Type: 
  Country: None (occurrence: None)
  Receive Date: 20120227
  Receipt Date: 20120227
  Transmission Date: 20120608
  Serious: Yes (Death, Life-Threatening, Hospitalization, Disabling, Other)
  Sender: FDA-Public Use
  Company Number: None

PATIENT
  Age: 67 Year
  Sex: Male
  Weight: 100 kg

DRUGS (2)
  1. HEPARIN [Concomitant]
     Indication: ACUTE MYOCARDIAL INFARCTION
     Dosage: 5,000 UNITS
     Route: 042
  2. PRADAXA [Suspect]
     Indication: ATRIAL FIBRILLATION
     Dosage: 150 MG
     Route: 048

REACTIONS (10)
  - ACUTE MYOCARDIAL INFARCTION [None]
  - CARDIO-RESPIRATORY ARREST [None]
  - PULSELESS ELECTRICAL ACTIVITY [None]
  - HYPOXIC-ISCHAEMIC ENCEPHALOPATHY [None]
  - CARDIOGENIC SHOCK [None]
  - CARDIAC TAMPONADE [None]
  - DYSPNOEA [None]
  - PERICARDIAL EFFUSION [None]
  - MULTI-ORGAN FAILURE [None]
  - SLEEP APNOEA SYNDROME [None]
